FAERS Safety Report 15227797 (Version 1)
Quarter: 2018Q3

REPORT INFORMATION
  Report Type: Spontaneous
  Country: US (occurrence: US)
  Receive Date: 20180801
  Receipt Date: 20180801
  Transmission Date: 20181010
  Serious: No
  Sender: FDA-Public Use
  Company Number: US-BAYER-2018-140270

PATIENT
  Sex: Female

DRUGS (1)
  1. MIRALAX [Suspect]
     Active Substance: POLYETHYLENE GLYCOL 3350
     Indication: DIVERTICULITIS
     Dosage: LESS THAN A CAPFUL DOSE
     Route: 048

REACTIONS (6)
  - Product use in unapproved indication [Unknown]
  - Incorrect drug administration duration [Unknown]
  - Product use issue [Unknown]
  - Product prescribing issue [Unknown]
  - Underdose [Unknown]
  - Therapeutic response unexpected [Unknown]
